FAERS Safety Report 21665616 (Version 1)
Quarter: 2022Q4

REPORT INFORMATION
  Report Type: Spontaneous
  Country: US (occurrence: US)
  Receive Date: 20221201
  Receipt Date: 20221201
  Transmission Date: 20230112
  Serious: Yes (Hospitalization, Other)
  Sender: FDA-Public Use
  Company Number: US-SNT-000313

PATIENT
  Age: 21 Year
  Sex: Male

DRUGS (6)
  1. BUPROPION [Suspect]
     Active Substance: BUPROPION
     Indication: Product used for unknown indication
     Dosage: 150 MG
     Route: 065
  2. QUETIAPINE [Suspect]
     Active Substance: QUETIAPINE
     Indication: Insomnia
     Dosage: 100 MG NIGHTLY
     Route: 065
  3. ATOMOXETINE [Suspect]
     Active Substance: ATOMOXETINE
     Indication: Product used for unknown indication
     Dosage: 40 MG
     Route: 065
  4. ALPRAZOLAM [Concomitant]
     Active Substance: ALPRAZOLAM
     Indication: Anxiety
     Dosage: 0.25 MG, AS NEEDED
     Route: 065
  5. BUPROPION [Suspect]
     Active Substance: BUPROPION
     Dosage: 300 MG DAILY
     Route: 065
  6. QUETIAPINE [Suspect]
     Active Substance: QUETIAPINE
     Indication: Insomnia
     Dosage: 400 MG AT BEDTIME
     Route: 065

REACTIONS (7)
  - Blood creatine phosphokinase increased [Unknown]
  - Generalised tonic-clonic seizure [Recovered/Resolved]
  - Mania [Unknown]
  - Leukocytosis [Unknown]
  - Transaminases increased [Unknown]
  - Blood pressure systolic increased [Unknown]
  - Blood pressure diastolic decreased [Unknown]
